FAERS Safety Report 5494714-2 (Version None)
Quarter: 2007Q4

REPORT INFORMATION
  Report Type: 
  Country: None (occurrence: None)
  Receive Date: 20071023
  Receipt Date: 20071023
  Transmission Date: 20080405
  Serious: Yes (Other)
  Sender: FDA-Public Use
  Company Number: None

PATIENT
  Age: 31 Year
  Sex: Male
  Weight: 78.4723 kg

DRUGS (5)
  1. AZITHROMYCIN [Suspect]
     Indication: INFECTION
     Dosage: 500 MG  AS PRESCRIBED  PO
     Route: 048
     Dates: start: 20071020, end: 20071020
  2. MUCINEX [Concomitant]
  3. ADVIL [Concomitant]
  4. ROBITUSSIN [Concomitant]
  5. BENADRYL [Concomitant]

REACTIONS (4)
  - EYELID OEDEMA [None]
  - OEDEMA PERIPHERAL [None]
  - RASH [None]
  - URTICARIA [None]
